FAERS Safety Report 8283821-7 (Version None)
Quarter: 2012Q2

REPORT INFORMATION
  Report Type: 
  Country: None (occurrence: None)
  Receive Date: 20120413
  Receipt Date: 20111031
  Transmission Date: 20120825
  Serious: No
  Sender: FDA-Public Use
  Company Number: US-ASTRAZENECA-2011SE53929

PATIENT
  Age: 44 Year
  Sex: Female

DRUGS (2)
  1. NEXIUM [Suspect]
     Route: 048
  2. NEXIUM [Suspect]
     Dosage: TWO CAPSULES PER DAY
     Route: 048

REACTIONS (5)
  - DYSPHAGIA [None]
  - INSOMNIA [None]
  - PAIN [None]
  - ULCER [None]
  - DRUG DOSE OMISSION [None]
